FAERS Safety Report 6242350-2 (Version None)
Quarter: 2009Q2

REPORT INFORMATION
  Report Type: 
  Country: None (occurrence: None)
  Receive Date: 20090622
  Receipt Date: 20090622
  Transmission Date: 20091009
  Serious: Yes (Hospitalization)
  Sender: FDA-Public Use
  Company Number: None

PATIENT
  Sex: Male
  Weight: 83 kg

DRUGS (11)
  1. AZACITIDINE [Suspect]
     Dosage: 150 MG X 5 DAYS Q28 IV
     Route: 042
  2. ACETAMINOPHEN [Concomitant]
  3. ALLOPURINOL [Concomitant]
  4. AMMONIUM LACTATE [Concomitant]
  5. AMOXICILLIN [Concomitant]
  6. DOCUSATE NA [Concomitant]
  7. FINASTERIDE [Concomitant]
  8. LISINOPRIL AND HYDROCHLOROTHIAZIDE [Concomitant]
  9. LORATADINE [Concomitant]
  10. PROCHLORPERAZINE MALEATE [Concomitant]
  11. TAMSULOSIN HCL [Concomitant]

REACTIONS (2)
  - FEBRILE NEUTROPENIA [None]
  - PNEUMONIA [None]
